FAERS Safety Report 6030333-7 (Version None)
Quarter: 2009Q1

REPORT INFORMATION
  Report Type: 
  Country: None (occurrence: None)
  Receive Date: 20090107
  Receipt Date: 20080728
  Transmission Date: 20090719
  Serious: No
  Sender: FDA-Public Use
  Company Number: US-BAYER-200813213BCC

PATIENT
  Age: 30 Year
  Sex: Female
  Weight: 75 kg

DRUGS (1)
  1. ALEVE (CAPLET) [Suspect]
     Indication: MUSCULOSKELETAL STIFFNESS
     Dosage: UNIT DOSE: 220 MG
     Route: 048
     Dates: start: 20080722, end: 20080723

REACTIONS (4)
  - CHEST DISCOMFORT [None]
  - DIARRHOEA [None]
  - PYREXIA [None]
  - THROAT IRRITATION [None]
